FAERS Safety Report 10039176 (Version 3)
Quarter: 2014Q2

REPORT INFORMATION
  Report Type: Spontaneous
  Country: US (occurrence: US)
  Receive Date: 20140326
  Receipt Date: 20140505
  Transmission Date: 20141212
  Serious: No
  Sender: FDA-Public Use
  Company Number: US-009507513-1403USA011608

PATIENT
  Age: 62 Year
  Sex: Female

DRUGS (3)
  1. LOTRISONE [Suspect]
     Indication: PRURITUS
     Dosage: UNK UNK, PRN
     Route: 061
     Dates: start: 20140320
  2. LOTRISONE [Suspect]
     Indication: EAR INFECTION
  3. VIVELLE (ESTRADIOL) [Concomitant]

REACTIONS (1)
  - Ear pain [Unknown]
